FAERS Safety Report 7283919-6 (Version None)
Quarter: 2011Q1

REPORT INFORMATION
  Report Type: 
  Country: None (occurrence: None)
  Receive Date: 20110209
  Receipt Date: 20110128
  Transmission Date: 20110831
  Serious: Yes (Hospitalization)
  Sender: FDA-Public Use
  Company Number: PHHY2011FR07431

PATIENT
  Age: 35 Year
  Sex: Female

DRUGS (10)
  1. BASILIXIMAB [Concomitant]
     Indication: IMMUNOSUPPRESSION
     Dosage: UNK
  2. PYRAZINAMIDE [Suspect]
     Indication: PULMONARY TUBERCULOSIS
  3. MYCOPHENOLATE MOFETIL [Concomitant]
     Indication: IMMUNOSUPPRESSION
     Dosage: UNK
  4. RIFAMPICIN [Suspect]
     Indication: DISSEMINATED TUBERCULOSIS
  5. ETHAMBUTOL HYDROCHLORIDE [Suspect]
     Indication: DISSEMINATED TUBERCULOSIS
  6. TACROLIMUS [Concomitant]
     Indication: IMMUNOSUPPRESSION
     Dosage: UNK
  7. ISONIAZID [Suspect]
     Indication: PULMONARY TUBERCULOSIS
  8. RIFAMPICIN [Suspect]
     Indication: PULMONARY TUBERCULOSIS
  9. MOXIFLOXACIN [Suspect]
     Indication: DISSEMINATED TUBERCULOSIS
  10. AMIKACIN [Suspect]
     Indication: DISSEMINATED TUBERCULOSIS

REACTIONS (2)
  - JAUNDICE [None]
  - ACUTE HEPATIC FAILURE [None]
